FAERS Safety Report 9536267 (Version 1)
Quarter: 2013Q3

REPORT INFORMATION
  Report Type: Spontaneous
  Country: US (occurrence: None)
  Receive Date: 20130917
  Receipt Date: 20130917
  Transmission Date: 20140515
  Serious: No
  Sender: FDA-Public Use
  Company Number: None

PATIENT
  Age: 70 Year
  Sex: Female
  Weight: 57.61 kg

DRUGS (7)
  1. AVELOX [Suspect]
     Indication: PNEUMONIA
     Dosage: 400 MG 12 PILLS 1 DAILY BY MOUTH
     Route: 048
     Dates: start: 20130404, end: 20130417
  2. HCTZ [Concomitant]
  3. LEVOTHYROXINE [Concomitant]
  4. FISH OIL [Concomitant]
  5. CALCIUM [Concomitant]
  6. VIT D3 [Concomitant]
  7. MULT-VITAMINS [Concomitant]

REACTIONS (4)
  - Urticaria [None]
  - Diarrhoea [None]
  - Epistaxis [None]
  - Pneumonia [None]
